FAERS Safety Report 6437485-5 (Version None)
Quarter: 2009Q4

REPORT INFORMATION
  Report Type: 
  Country: None (occurrence: None)
  Receive Date: 20091112
  Receipt Date: 20091105
  Transmission Date: 20100525
  Serious: Yes (Hospitalization, Disabling, Other)
  Sender: FDA-Public Use
  Company Number: SE-ABBOTT-09P-150-0607270-00

PATIENT
  Sex: Female

DRUGS (6)
  1. PROCREN DEPOT 3.75 MG [Suspect]
     Indication: ENDOMETRIOSIS
     Route: 058
     Dates: start: 20030101, end: 20030601
  2. PROCREN DEPOT 3.75 MG [Suspect]
     Route: 058
     Dates: start: 20060101, end: 20080201
  3. TRAMADOL HCL [Concomitant]
     Indication: PAIN
  4. MORPHINE [Concomitant]
     Indication: PAIN
  5. MORPHINE [Concomitant]
  6. EVOREL [Concomitant]
     Indication: OESTROGEN REPLACEMENT THERAPY
     Dosage: PATCH
     Dates: start: 20060101

REACTIONS (4)
  - CERVICITIS [None]
  - ENDOMETRIOSIS [None]
  - LEIOMYOMA [None]
  - UTERINE ATROPHY [None]
